FAERS Safety Report 15319612 (Version 1)
Quarter: 2018Q3

REPORT INFORMATION
  Report Type: Spontaneous
  Country: US (occurrence: US)
  Receive Date: 20180827
  Receipt Date: 20180827
  Transmission Date: 20181010
  Serious: Yes (Hospitalization, Other)
  Sender: FDA-Public Use
  Company Number: US-BEH-2018094173

PATIENT
  Sex: Male
  Weight: 102.4 kg

DRUGS (24)
  1. ZEMAIRA [Suspect]
     Active Substance: .ALPHA.1-PROTEINASE INHIBITOR HUMAN
     Dosage: 60 MG/KG, QW
     Route: 058
     Dates: start: 20081117
  2. HUMALOG [Concomitant]
     Active Substance: INSULIN LISPRO
  3. ASPIRIN. [Concomitant]
     Active Substance: ASPIRIN
  4. DIPHENHYDRAMINE. [Concomitant]
     Active Substance: DIPHENHYDRAMINE
  5. CYMBALTA [Concomitant]
     Active Substance: DULOXETINE HYDROCHLORIDE
  6. TOPIRAMATE. [Concomitant]
     Active Substance: TOPIRAMATE
  7. CALCIUM CITRATE/VITAMIN D [Concomitant]
     Active Substance: CALCIUM CITRATE\VITAMIN D
  8. LAMICTAL [Concomitant]
     Active Substance: LAMOTRIGINE
  9. QUALAQUIN [Concomitant]
     Active Substance: QUININE SULFATE
  10. LISINOPRIL. [Concomitant]
     Active Substance: LISINOPRIL
  11. EPINEPHRINE. [Concomitant]
     Active Substance: EPINEPHRINE
  12. FLUTICASONE. [Concomitant]
     Active Substance: FLUTICASONE
  13. COENZYME Q10 [Concomitant]
     Active Substance: UBIDECARENONE
  14. SODIUM CHLORIDE. [Concomitant]
     Active Substance: SODIUM CHLORIDE
  15. TRAMADOL. [Concomitant]
     Active Substance: TRAMADOL
  16. LMX                                /00033401/ [Concomitant]
  17. OCUVITE [Concomitant]
     Active Substance: VITAMINS
  18. MULTIVITAMIN                       /00097801/ [Concomitant]
     Active Substance: VITAMINS
  19. ZEMAIRA [Suspect]
     Active Substance: .ALPHA.1-PROTEINASE INHIBITOR HUMAN
     Indication: ALPHA-1 ANTI-TRYPSIN DEFICIENCY
     Dosage: UNK
     Route: 042
  20. LYRICA [Concomitant]
     Active Substance: PREGABALIN
  21. LASIX [Concomitant]
     Active Substance: FUROSEMIDE
  22. PRILOSEC [Concomitant]
     Active Substance: OMEPRAZOLE MAGNESIUM
  23. JANUMET [Concomitant]
     Active Substance: METFORMIN HYDROCHLORIDE\SITAGLIPTIN PHOSPHATE
  24. LIPITOR [Concomitant]
     Active Substance: ATORVASTATIN CALCIUM

REACTIONS (2)
  - Cellulitis [Unknown]
  - Cholecystitis infective [Unknown]

NARRATIVE: CASE EVENT DATE: 2018
